FAERS Safety Report 17495557 (Version 2)
Quarter: 2020Q1

REPORT INFORMATION
  Report Type: Spontaneous
  Country: US (occurrence: US)
  Receive Date: 20200304
  Receipt Date: 20200305
  Transmission Date: 20200409
  Serious: No
  Sender: FDA-Public Use
  Company Number: US-PFIZER INC-2019531597

PATIENT
  Age: 67 Year
  Sex: Male
  Weight: 58.97 kg

DRUGS (2)
  1. CHANTIX [Suspect]
     Active Substance: VARENICLINE TARTRATE
     Dosage: UNK, 1X/DAY
     Route: 048
     Dates: start: 20200202
  2. CHANTIX [Suspect]
     Active Substance: VARENICLINE TARTRATE
     Indication: SMOKING CESSATION THERAPY
     Dosage: UNK, 2X/DAY

REACTIONS (6)
  - Pruritus [Recovered/Resolved]
  - Weight increased [Unknown]
  - Intentional product misuse [Unknown]
  - Urticaria [Recovered/Resolved]
  - Abnormal dreams [Unknown]
  - Insomnia [Unknown]

NARRATIVE: CASE EVENT DATE: 2020
